FAERS Safety Report 4716033-1 (Version None)
Quarter: 2005Q3

REPORT INFORMATION
  Report Type: 
  Country: None (occurrence: None)
  Receive Date: 20050718
  Receipt Date: 20050708
  Transmission Date: 20060218
  Serious: Yes (Other)
  Sender: FDA-Public Use
  Company Number: 200516344GDDC

PATIENT
  Age: 51 Year
  Sex: Female

DRUGS (2)
  1. TELFAST [Suspect]
     Route: 048
  2. NORVASC [Concomitant]

REACTIONS (1)
  - HYPERTENSION [None]
